FAERS Safety Report 19092688 (Version 1)
Quarter: 2021Q2

REPORT INFORMATION
  Report Type: Spontaneous
  Country: US (occurrence: US)
  Receive Date: 20210405
  Receipt Date: 20210405
  Transmission Date: 20210717
  Serious: Yes (Hospitalization)
  Sender: FDA-Public Use
  Company Number: None

PATIENT
  Age: 80 Year
  Sex: Female

DRUGS (1)
  1. REPATHA [Suspect]
     Active Substance: EVOLOCUMAB
     Indication: CORONARY ARTERY DISEASE
     Route: 058
     Dates: start: 20180808

REACTIONS (3)
  - Pneumonia [None]
  - Therapy interrupted [None]
  - Thrombosis [None]

NARRATIVE: CASE EVENT DATE: 20210320
